FAERS Safety Report 13237307 (Version 1)
Quarter: 2017Q1

REPORT INFORMATION
  Report Type: Spontaneous
  Country: CA (occurrence: CA)
  Receive Date: 20170215
  Receipt Date: 20170215
  Transmission Date: 20170428
  Serious: Yes (Hospitalization)
  Sender: FDA-Public Use
  Company Number: CA-SA-2017SA025359

PATIENT
  Age: 46 Year
  Sex: Female
  Weight: 73 kg

DRUGS (10)
  1. GRANISETRON [Concomitant]
     Active Substance: GRANISETRON
     Route: 065
  2. DEXAMETHASONE. [Concomitant]
     Active Substance: DEXAMETHASONE
     Route: 065
  3. FOLINIC ACID [Concomitant]
     Active Substance: LEUCOVORIN
     Route: 065
  4. ELOXATIN [Suspect]
     Active Substance: OXALIPLATIN
     Indication: COLON CANCER
     Dosage: 1 EVERY 2 WEEK(S)
     Route: 042
  5. ELOXATIN [Suspect]
     Active Substance: OXALIPLATIN
     Indication: COLON CANCER
     Route: 048
  6. DEXAMETHASONE SODIUM PHOSPHATE. [Suspect]
     Active Substance: DEXAMETHASONE SODIUM PHOSPHATE
     Indication: PROPHYLAXIS OF NAUSEA AND VOMITING
     Route: 048
  7. DEXAMETHASONE SODIUM PHOSPHATE. [Suspect]
     Active Substance: DEXAMETHASONE SODIUM PHOSPHATE
     Indication: PROPHYLAXIS OF NAUSEA AND VOMITING
     Route: 042
  8. FOSAPREPITANT [Concomitant]
     Active Substance: FOSAPREPITANT
     Dosage: POWDER FOR SOLUTION INTRAVENOUS
     Route: 042
  9. PROCHLORAZINE [Concomitant]
     Route: 065
  10. ELOXATIN [Suspect]
     Active Substance: OXALIPLATIN
     Indication: COLON CANCER
     Dosage: 1 EVERY 2 WEEK(S)
     Route: 042

REACTIONS (3)
  - Pancreatitis acute [Recovered/Resolved]
  - Diabetic ketoacidosis [Recovered/Resolved]
  - Lipase increased [Recovered/Resolved]
